FAERS Safety Report 19117013 (Version 1)
Quarter: 2021Q2

REPORT INFORMATION
  Report Type: Spontaneous
  Country: US (occurrence: US)
  Receive Date: 20210409
  Receipt Date: 20210409
  Transmission Date: 20210717
  Serious: No
  Sender: FDA-Public Use
  Company Number: US-SA-2021SA118240

PATIENT
  Sex: Male

DRUGS (1)
  1. NASACORT [Suspect]
     Active Substance: TRIAMCINOLONE ACETONIDE
     Dosage: UNK

REACTIONS (1)
  - Dry eye [Not Recovered/Not Resolved]
